FAERS Safety Report 19306495 (Version 1)
Quarter: 2021Q2

REPORT INFORMATION
  Report Type: Spontaneous
  Country: US (occurrence: US)
  Receive Date: 20210526
  Receipt Date: 20210526
  Transmission Date: 20210717
  Serious: No
  Sender: FDA-Public Use
  Company Number: US-AMGEN-USASP2021078097

PATIENT
  Age: 53 Year
  Sex: Female

DRUGS (2)
  1. PROLIA [Suspect]
     Active Substance: DENOSUMAB
     Indication: OSTEOPOROSIS
     Dosage: UNK
     Route: 065
     Dates: start: 20201130
  2. IMMUNOGLOBULIN I.V [Concomitant]
     Active Substance: HUMAN IMMUNOGLOBULIN G
     Dosage: UNK UNK, QMO
     Dates: start: 2008

REACTIONS (7)
  - Aphthous ulcer [Unknown]
  - Dyspnoea [Unknown]
  - Headache [Unknown]
  - Palpitations [Recovering/Resolving]
  - Arthralgia [Unknown]
  - Back pain [Unknown]
  - Genital lesion [Unknown]

NARRATIVE: CASE EVENT DATE: 202012
